FAERS Safety Report 16069905 (Version 2)
Quarter: 2019Q2

REPORT INFORMATION
  Report Type: Spontaneous
  Country: US (occurrence: US)
  Receive Date: 20190314
  Receipt Date: 20190401
  Transmission Date: 20190711
  Serious: No
  Sender: FDA-Public Use
  Company Number: US-JNJFOC-20190220218

PATIENT
  Age: 65 Year
  Sex: Male
  Weight: 52.62 kg

DRUGS (1)
  1. TYLENOL EXTRA STRENGTH [Suspect]
     Active Substance: ACETAMINOPHEN
     Indication: PAIN
     Dosage: FOUR/FIVE TIMES
     Route: 048

REACTIONS (2)
  - Expired product administered [Unknown]
  - Product dispensing error [Unknown]
